FAERS Safety Report 5777056-7 (Version None)
Quarter: 2008Q2

REPORT INFORMATION
  Report Type: 
  Country: None (occurrence: None)
  Receive Date: 20080618
  Receipt Date: 20080425
  Transmission Date: 20081010
  Serious: Yes (Hospitalization)
  Sender: FDA-Public Use
  Company Number: US-ASTRAZENECA-2008UW08595

PATIENT
  Age: 65 Year
  Sex: Male

DRUGS (2)
  1. SYMBICORT [Suspect]
     Dosage: 160/4.5 MCG
     Route: 055
  2. ADVAIR DISKUS 100/50 [Concomitant]
     Dosage: 500/50 MCG

REACTIONS (2)
  - PALPITATIONS [None]
  - TACHYCARDIA [None]
